FAERS Safety Report 6932502-8 (Version None)
Quarter: 2010Q3

REPORT INFORMATION
  Report Type: 
  Country: None (occurrence: None)
  Receive Date: 20100817
  Receipt Date: 20100802
  Transmission Date: 20110219
  Serious: Yes (Hospitalization)
  Sender: FDA-Public Use
  Company Number: AUR-APL-2010-01945

PATIENT
  Age: 65 Year
  Sex: Male

DRUGS (2)
  1. RIBAVIRIN [Suspect]
     Indication: HEPATITIS C VIRUS TEST POSITIVE
  2. PEGINTERFERON ALFA-2A [Suspect]
     Indication: HEPATITIS C VIRUS TEST POSITIVE

REACTIONS (5)
  - ANAEMIA [None]
  - AUTOIMMUNE DISORDER [None]
  - DEHYDRATION [None]
  - DIARRHOEA [None]
  - WEIGHT DECREASED [None]
